FAERS Safety Report 9124271 (Version 2)
Quarter: 2013Q1

REPORT INFORMATION
  Report Type: Spontaneous
  Country: US (occurrence: US)
  Receive Date: 20130227
  Receipt Date: 20130306
  Transmission Date: 20140127
  Serious: Yes (Other)
  Sender: FDA-Public Use
  Company Number: PHEH2013US004673

PATIENT
  Sex: Female

DRUGS (1)
  1. DIOVAN HCT [Suspect]
     Dosage: 1 DF, (320 MG VALS / 12.5 MG HCTZ) UNK

REACTIONS (3)
  - Fall [Unknown]
  - Stress fracture [Unknown]
  - Influenza [Unknown]
